FAERS Safety Report 8459887-8 (Version None)
Quarter: 2012Q2

REPORT INFORMATION
  Report Type: 
  Country: None (occurrence: None)
  Receive Date: 20120622
  Receipt Date: 20120615
  Transmission Date: 20120825
  Serious: Yes (Other)
  Sender: FDA-Public Use
  Company Number: PHHY2012BR052057

PATIENT

DRUGS (3)
  1. AMLODOPINE BESYLATE AND VALSARTAN [Suspect]
     Dosage: 1 DF (320 MG VAL/ 10 MG AMLO)
  2. RASILEZ [Suspect]
     Dosage: 300 MG
  3. METOPROLOL TARTRATE [Suspect]
     Dosage: 100 MG

REACTIONS (4)
  - SKIN ULCER [None]
  - SKIN LESION [None]
  - PRURITUS [None]
  - SKIN EXFOLIATION [None]
